FAERS Safety Report 13029443 (Version 5)
Quarter: 2017Q2

REPORT INFORMATION
  Report Type: Report from Study
  Country: JP (occurrence: JP)
  Receive Date: 20161215
  Receipt Date: 20170427
  Transmission Date: 20170830
  Serious: Yes (Life-Threatening, Hospitalization, Other)
  Sender: FDA-Public Use
  Company Number: JP-ALEXION-A201609811

PATIENT
  Age: 1 Month
  Sex: Female

DRUGS (4)
  1. STRENSIQ [Suspect]
     Active Substance: ASFOTASE ALFA
     Dosage: UNK MG/KG, UNK
     Route: 058
     Dates: start: 20161210
  2. STRENSIQ [Suspect]
     Active Substance: ASFOTASE ALFA
     Indication: HYPOPHOSPHATASIA
     Dosage: 12 MG, DAILY
     Route: 058
     Dates: start: 20161018, end: 201702
  3. STRENSIQ [Suspect]
     Active Substance: ASFOTASE ALFA
     Dosage: 18 MG, DAILY
     Route: 058
     Dates: start: 201703
  4. STRENSIQ [Suspect]
     Active Substance: ASFOTASE ALFA
     Dosage: 3 MG/KG, UNK
     Route: 058
     Dates: start: 201703

REACTIONS (9)
  - Condition aggravated [Not Recovered/Not Resolved]
  - Respiratory disorder [Not Recovered/Not Resolved]
  - Failure to thrive [Not Recovered/Not Resolved]
  - Hypercalcaemia [Not Recovered/Not Resolved]
  - Rickets [Not Recovered/Not Resolved]
  - Drug ineffective [Unknown]
  - Neutralising antibodies positive [Unknown]
  - Nephrocalcinosis [Not Recovered/Not Resolved]
  - Leukocyturia [Not Recovered/Not Resolved]

NARRATIVE: CASE EVENT DATE: 201612
